FAERS Safety Report 9314736 (Version 4)
Quarter: 2013Q3

REPORT INFORMATION
  Report Type: Report from Study
  Country: US (occurrence: US)
  Receive Date: 20130529
  Receipt Date: 20130719
  Transmission Date: 20140515
  Serious: No
  Sender: FDA-Public Use
  Company Number: US-VERTEX PHARMACEUTICALS INC-2013-006426

PATIENT
  Age: 63 Year
  Sex: Male
  Weight: 82 kg

DRUGS (20)
  1. VX-950 (TELAPREVIR) [Suspect]
     Indication: HEPATITIS C
     Dosage: 750 MG, TID
     Route: 048
     Dates: start: 20130510, end: 20130715
  2. PEGINTERFERON ALFA [Suspect]
     Indication: HEPATITIS C
     Dosage: 120 ?G, QW
     Route: 058
     Dates: start: 20130510, end: 20130715
  3. RIBAPAK [Suspect]
     Indication: HEPATITIS C
     Dosage: 600 MG AM, 400 MG PM, QD
     Route: 048
     Dates: start: 20130510, end: 20130715
  4. CALCIUM CITRATE [Concomitant]
     Dosage: 1 DF, QD
     Route: 048
  5. METOPROLOL TARTRATE [Concomitant]
     Dosage: 1 DF, QD
     Route: 048
  6. BOTULINUM TOXIN TYPE A [Concomitant]
     Dosage: UNK, YEARLY
     Route: 030
  7. IODINE [Concomitant]
     Dosage: UNK, QD
     Route: 048
  8. VITAMIN D [Concomitant]
     Dosage: 2 DF, QD
     Route: 048
  9. PROBIOTIC [Concomitant]
     Dosage: 1 DF, QD
     Route: 048
  10. TOPROL [Concomitant]
     Indication: HYPERTENSION
     Dosage: 1 DF, QD
     Route: 048
  11. MULTIVITAMIN [Concomitant]
     Dosage: 1 DF, QD
     Route: 048
  12. OMEGA 3 [Concomitant]
     Dosage: UNK, QD
  13. ASPIRIN [Concomitant]
     Dosage: 1 DF, QD
     Route: 048
  14. LEVITRA [Concomitant]
     Dosage: 1 DF, QW
     Route: 048
  15. EPA [Concomitant]
     Dosage: 1 DF, QD
     Route: 048
  16. GINKGO BILOBA [Concomitant]
     Dosage: 1 DF, QD
  17. SARNA [Concomitant]
     Indication: DRUG ERUPTION
     Dosage: 1 DF, QID
     Dates: start: 20130524
  18. BLOOD THINNER [Concomitant]
  19. BENADRYL [Concomitant]
     Indication: PRURITUS
  20. CLARITIN [Concomitant]
     Indication: PRURITUS

REACTIONS (11)
  - Cardiac flutter [Not Recovered/Not Resolved]
  - Depression [Unknown]
  - Palpitations [Unknown]
  - Migraine with aura [Not Recovered/Not Resolved]
  - Visual acuity reduced [Unknown]
  - Injection site reaction [Not Recovered/Not Resolved]
  - Dizziness [Not Recovered/Not Resolved]
  - Lethargy [Not Recovered/Not Resolved]
  - Asthenia [Unknown]
  - Fatigue [Unknown]
  - Rash macular [Unknown]
